FAERS Safety Report 19015050 (Version 17)
Quarter: 2024Q3

REPORT INFORMATION
  Report Type: Spontaneous
  Country: IN (occurrence: IN)
  Receive Date: 20210316
  Receipt Date: 20240709
  Transmission Date: 20241017
  Serious: Yes (Hospitalization, Other)
  Sender: PFIZER
  Company Number: IN-PFIZER INC-2019147174

PATIENT
  Age: 50 Year
  Sex: Female

DRUGS (16)
  1. CRIZOTINIB [Suspect]
     Active Substance: CRIZOTINIB
     Indication: Non-small cell lung cancer metastatic
     Dosage: 250 MG, 2X/DAY
     Route: 048
     Dates: start: 20141129
  2. CRIZOTINIB [Suspect]
     Active Substance: CRIZOTINIB
     Dosage: 250 MG, 2X/DAY
     Route: 048
  3. DIVALPROEX SODIUM [Concomitant]
     Active Substance: DIVALPROEX SODIUM
     Dosage: UNK
  4. TELMISARTAN [Concomitant]
     Active Substance: TELMISARTAN
     Indication: Hypertension
     Dosage: 40 (UNIT NOT PROVIDED) AM 1X/DAY
  5. INSULIN HUMAN [Concomitant]
     Active Substance: INSULIN HUMAN
     Dosage: UNK
  6. INSULIN HUMAN [Concomitant]
     Active Substance: INSULIN HUMAN
     Dosage: 32-BBF, 30MINS PM (BEFORE DINNER)
  7. ROSUVASTATIN CALCIUM [Concomitant]
     Active Substance: ROSUVASTATIN CALCIUM
     Dosage: UNK
  8. CLOPITORVA [Concomitant]
     Dosage: UNK
  9. LT4 [Concomitant]
     Indication: Hypothyroidism
     Dosage: 75 (UNIT NOT PROVIDED)
  10. LT4 [Concomitant]
     Dosage: 50 (UNIT NOT PROVIDED)
  11. LOBATE-M [Concomitant]
     Dosage: UNK
  12. CALRAGE [Concomitant]
     Dosage: UNK, 1X/DAY
  13. SAROGLITAZAR [Concomitant]
     Active Substance: SAROGLITAZAR
     Dosage: UNK
  14. USIBON [Concomitant]
     Dosage: UNK
  15. UNSPECIFIED INGREDIENT [Concomitant]
     Active Substance: UNSPECIFIED INGREDIENT
     Dosage: 1.5 G, 2X/DAY
  16. AZIBACT [Concomitant]
     Dosage: 500MG

REACTIONS (32)
  - Nausea [Unknown]
  - Electrocardiogram ST segment elevation [Unknown]
  - Chronic kidney disease [Unknown]
  - Azotaemia [Unknown]
  - Peripheral swelling [Not Recovered/Not Resolved]
  - Abdominal pain [Unknown]
  - Vomiting [Unknown]
  - Haemoglobin decreased [Unknown]
  - Vertigo [Recovered/Resolved]
  - Headache [Unknown]
  - Blood pressure decreased [Unknown]
  - Oropharyngeal pain [Unknown]
  - Odynophagia [Unknown]
  - Tongue movement disturbance [Unknown]
  - Tri-iodothyronine decreased [Unknown]
  - Oedema peripheral [Unknown]
  - Pallor [Unknown]
  - Swelling [Unknown]
  - Cough [Recovered/Resolved]
  - Chest discomfort [Unknown]
  - Neoplasm progression [Unknown]
  - Abdominal pain upper [Unknown]
  - Constipation [Unknown]
  - Oedema [Unknown]
  - Osteoarthritis [Unknown]
  - Swelling face [Unknown]
  - Respiratory rate increased [Unknown]
  - Blood glucose increased [Unknown]
  - Blood alkaline phosphatase increased [Unknown]
  - Pyrexia [Unknown]
  - Chills [Unknown]
  - Hypoglycaemia [Unknown]

NARRATIVE: CASE EVENT DATE: 20221020
